FAERS Safety Report 24005276 (Version 1)
Quarter: 2024Q2

REPORT INFORMATION
  Report Type: Spontaneous
  Country: PL (occurrence: PL)
  Receive Date: 20240624
  Receipt Date: 20240624
  Transmission Date: 20240715
  Serious: Yes (Other)
  Sender: FDA-Public Use
  Company Number: PL-GILEAD-2024-0677937

PATIENT
  Sex: Female

DRUGS (6)
  1. BIKTARVY [Suspect]
     Active Substance: BICTEGRAVIR SODIUM\EMTRICITABINE\TENOFOVIR ALAFENAMIDE FUMARATE
     Indication: HIV infection
     Dosage: UNK
     Route: 065
  2. DEXAMETHASONE [Concomitant]
     Active Substance: DEXAMETHASONE
     Dosage: 40 MG FOR FOUR DAYS
  3. PREDNISONE [Concomitant]
     Active Substance: PREDNISONE
  4. ETHAMSYLATE [Concomitant]
     Active Substance: ETHAMSYLATE
  5. IRON [Concomitant]
     Active Substance: IRON
  6. FOLIC ACID [Concomitant]
     Active Substance: FOLIC ACID

REACTIONS (2)
  - Thrombocytopenia [Unknown]
  - Hepatitis [Unknown]
